FAERS Safety Report 22233225 (Version 1)
Quarter: 2023Q2

REPORT INFORMATION
  Report Type: Other
  Country: IN (occurrence: None)
  Receive Date: 20230420
  Receipt Date: 20230420
  Transmission Date: 20230721
  Serious: Yes (Hospitalization)
  Sender: FDA-Public Use
  Company Number: IN-ROCHE-3315672

PATIENT
  Age: 73 Year
  Sex: Male

DRUGS (1)
  1. TECENTRIQ [Suspect]
     Active Substance: ATEZOLIZUMAB
     Indication: Hepatocellular carcinoma
     Route: 042
     Dates: start: 20230130

REACTIONS (7)
  - Blood creatinine increased [Unknown]
  - Blood pressure increased [Unknown]
  - Blood uric acid increased [Unknown]
  - Multiple organ dysfunction syndrome [Unknown]
  - Ill-defined disorder [Unknown]
  - Weight increased [Unknown]
  - Urine output decreased [Unknown]
